FAERS Safety Report 25649215 (Version 2)
Quarter: 2025Q3

REPORT INFORMATION
  Report Type: Spontaneous
  Country: TR (occurrence: TR)
  Receive Date: 20250806
  Receipt Date: 20250813
  Transmission Date: 20251021
  Serious: Yes (Life-Threatening, Hospitalization, Other)
  Sender: PFIZER
  Company Number: TR-PFIZER INC-PV202500093749

PATIENT
  Sex: Female

DRUGS (2)
  1. CABERGOLINE [Suspect]
     Active Substance: CABERGOLINE
     Indication: Menstruation irregular
     Route: 048
  2. CABERGOLINE [Suspect]
     Active Substance: CABERGOLINE
     Dosage: 3 MG, WEEKLY (TITRATED UP TO 3 MG/WEEK)
     Route: 048

REACTIONS (4)
  - Pituitary apoplexy [Recovered/Resolved]
  - Maternal exposure during pregnancy [Unknown]
  - Off label use [Unknown]
  - Drug effective for unapproved indication [Unknown]
